FAERS Safety Report 4714306-X (Version None)
Quarter: 2005Q3

REPORT INFORMATION
  Report Type: 
  Country: None (occurrence: None)
  Receive Date: 20050714
  Receipt Date: 20050711
  Transmission Date: 20060218
  Serious: Yes (Life-Threatening, Hospitalization)
  Sender: FDA-Public Use
  Company Number: FR-MERCK-0507FRA00040

PATIENT
  Age: 75 Year
  Sex: Female
  Weight: 130 kg

DRUGS (6)
  1. COZAAR [Suspect]
     Indication: HYPERTENSION
     Route: 048
     Dates: start: 19980601, end: 20050601
  2. NAPROXEN [Suspect]
     Indication: OSTEOARTHRITIS
     Route: 048
     Dates: end: 20050601
  3. DIOSMIN [Concomitant]
     Indication: ARTERIAL DISORDER
     Route: 048
  4. CLOPIDOGREL BISULFATE [Concomitant]
     Indication: CEREBROVASCULAR DISORDER
     Route: 048
  5. ZOCOR [Concomitant]
     Indication: HYPERCHOLESTEROLAEMIA
     Route: 048
  6. ACETAMINOPHEN [Concomitant]
     Indication: ARTHRALGIA
     Route: 048

REACTIONS (5)
  - ANAEMIA MACROCYTIC [None]
  - ANURIA [None]
  - DEHYDRATION [None]
  - HYPERKALAEMIA [None]
  - RENAL FAILURE ACUTE [None]
